FAERS Safety Report 12992593 (Version 3)
Quarter: 2017Q1

REPORT INFORMATION
  Report Type: Report from Study
  Country: IT (occurrence: IT)
  Receive Date: 20161202
  Receipt Date: 20170127
  Transmission Date: 20170428
  Serious: Yes (Hospitalization)
  Sender: FDA-Public Use
  Company Number: IT-ROCHE-1860895

PATIENT
  Age: 78 Year
  Sex: Male
  Weight: 70 kg

DRUGS (28)
  1. CARDICOR [Concomitant]
     Active Substance: BISOPROLOL
     Indication: MYOCARDIAL ISCHAEMIA
     Route: 048
     Dates: start: 2010
  2. CARDICOR [Concomitant]
     Active Substance: BISOPROLOL
     Indication: ATRIAL TACHYCARDIA
  3. AZOPT [Concomitant]
     Active Substance: BRINZOLAMIDE
     Indication: GLAUCOMA
     Route: 047
     Dates: start: 2011
  4. LATTULOSIO [Concomitant]
     Indication: CONSTIPATION
     Dosage: 1 TBSP (TABLESPOON DOSING UNIT)
     Route: 048
     Dates: start: 20160608
  5. SOLDESAM [Concomitant]
     Active Substance: DEXAMETHASONE
     Indication: SPINAL PAIN
     Route: 048
     Dates: start: 20160712
  6. PARACETAMOLO [Concomitant]
     Active Substance: ACETAMINOPHEN
     Indication: SPINAL PAIN
     Route: 048
     Dates: start: 20160712
  7. CODAMOL [Concomitant]
     Active Substance: ACETAMINOPHEN\CODEINE PHOSPHATE
     Indication: OSTEOARTHRITIS
     Route: 048
  8. CARDIRENE [Concomitant]
     Active Substance: ASPIRIN DL-LYSINE
     Indication: ATRIAL TACHYCARDIA
  9. GLAUBRIM [Concomitant]
     Indication: GLAUCOMA
     Route: 047
     Dates: start: 2011
  10. SENSINOL SOOTHING CLEANSING OIL [Concomitant]
     Indication: RASH
     Dosage: 1 OTHER
     Route: 061
     Dates: start: 20160526
  11. SENSINOL SOOTHING CLEANSING OIL [Concomitant]
     Indication: RASH ERYTHEMATOUS
  12. LEVOPRAID [Concomitant]
     Active Substance: SULPIRIDE
     Indication: DECREASED APPETITE
     Route: 048
     Dates: start: 20160615
  13. LEVOPRAID [Concomitant]
     Active Substance: SULPIRIDE
     Indication: NAUSEA
  14. EUTIROX [Concomitant]
     Active Substance: LEVOTHYROXINE SODIUM
     Indication: HYPOTHYROIDISM
     Dosage: 50 OTHER
     Route: 048
     Dates: start: 201510
  15. LERCADIP [Concomitant]
     Active Substance: LERCANIDIPINE HYDROCHLORIDE
     Indication: MYOCARDIAL ISCHAEMIA
     Route: 048
     Dates: start: 2010
  16. LERCADIP [Concomitant]
     Active Substance: LERCANIDIPINE HYDROCHLORIDE
     Indication: ATRIAL TACHYCARDIA
  17. CARDIRENE [Concomitant]
     Active Substance: ASPIRIN DL-LYSINE
     Indication: MYOCARDIAL ISCHAEMIA
     Route: 048
     Dates: start: 2010
  18. SENSINOL SOOTHING CLEANSING OIL [Concomitant]
     Indication: RASH PRURITIC
     Dosage: 1 OTHER
     Route: 061
     Dates: start: 20160331
  19. CETIRIZINA [Concomitant]
     Active Substance: CETIRIZINE HYDROCHLORIDE
     Indication: RASH PRURITIC
     Route: 048
     Dates: start: 20160331
  20. CETIRIZINA [Concomitant]
     Active Substance: CETIRIZINE HYDROCHLORIDE
     Indication: RASH ERYTHEMATOUS
  21. ATEZOLIZUMAB [Suspect]
     Active Substance: ATEZOLIZUMAB
     Indication: BLADDER TRANSITIONAL CELL CARCINOMA
     Dosage: MOST RECENT DOSE OF ATEZOLIZUMAB WAS ADMINISTERED ON 22/AUG/2016 PRIOR TO AE ONSET
     Route: 042
     Dates: start: 20151020
  22. ORAMORPH [Concomitant]
     Active Substance: MORPHINE SULFATE
     Indication: OSTEOARTHRITIS
     Route: 048
     Dates: start: 20151026
  23. PURSENNID [Concomitant]
     Active Substance: SENNOSIDES A AND B
     Indication: CONSTIPATION
     Route: 048
     Dates: start: 20160608
  24. PANTOPRAZOLO [Concomitant]
     Active Substance: PANTOPRAZOLE SODIUM
     Indication: PROPHYLAXIS
     Route: 048
  25. PRADIF [Concomitant]
     Active Substance: TAMSULOSIN HYDROCHLORIDE
     Indication: MYOCARDIAL ISCHAEMIA
     Route: 048
     Dates: start: 2010
  26. PRADIF [Concomitant]
     Active Substance: TAMSULOSIN HYDROCHLORIDE
     Indication: ATRIAL TACHYCARDIA
  27. LUMIGAN [Concomitant]
     Active Substance: BIMATOPROST
     Indication: GLAUCOMA
     Route: 047
     Dates: start: 2011
  28. PLASIL [Concomitant]
     Active Substance: METOCLOPRAMIDE HYDROCHLORIDE
     Indication: NAUSEA
     Route: 048
     Dates: start: 20160525

REACTIONS (2)
  - Rectal haemorrhage [Recovered/Resolved]
  - Diarrhoea [Not Recovered/Not Resolved]

NARRATIVE: CASE EVENT DATE: 20160916
